FAERS Safety Report 12603076 (Version 2)
Quarter: 2016Q3

REPORT INFORMATION
  Report Type: Spontaneous
  Country: JP (occurrence: JP)
  Receive Date: 20160728
  Receipt Date: 20160928
  Transmission Date: 20161109
  Serious: Yes (Other)
  Sender: FDA-Public Use
  Company Number: JP-SA-2016SA134932

PATIENT
  Age: 76 Year
  Sex: Male

DRUGS (5)
  1. JANUVIA [Concomitant]
     Active Substance: SITAGLIPTIN PHOSPHATE
  2. EQUA [Concomitant]
     Active Substance: VILDAGLIPTIN
  3. NESINA [Concomitant]
     Active Substance: ALOGLIPTIN BENZOATE
  4. GLACTIV [Concomitant]
     Active Substance: SITAGLIPTIN
  5. AMARYL [Suspect]
     Active Substance: GLIMEPIRIDE
     Route: 048

REACTIONS (1)
  - Pemphigoid [Recovered/Resolved]
